FAERS Safety Report 22176211 (Version 1)
Quarter: 2023Q2

REPORT INFORMATION
  Report Type: Spontaneous
  Country: DE (occurrence: DE)
  Receive Date: 20230405
  Receipt Date: 20230405
  Transmission Date: 20230721
  Serious: Yes (Other)
  Sender: FDA-Public Use
  Company Number: DE-MYLANLABS-2023M1035554

PATIENT
  Age: 76 Year

DRUGS (3)
  1. SORAFENIB [Suspect]
     Active Substance: SORAFENIB
     Indication: Hepatocellular carcinoma
     Dosage: UNK UNK, CYCLE
     Route: 065
     Dates: start: 202011, end: 202105
  2. LENVATINIB [Suspect]
     Active Substance: LENVATINIB
     Indication: Hepatocellular carcinoma
     Dosage: UNK, RECEIVED FOR 3 MONTHS, CYCLE
     Route: 065
     Dates: start: 202008, end: 202011
  3. CABOZANTINIB [Suspect]
     Active Substance: CABOZANTINIB
     Indication: Hepatocellular carcinoma
     Dosage: UNK, CYCLE
     Route: 065
     Dates: start: 202102, end: 202105

REACTIONS (1)
  - Drug ineffective [Unknown]
